FAERS Safety Report 21238341 (Version 1)
Quarter: 2022Q3

REPORT INFORMATION
  Report Type: Spontaneous
  Country: US (occurrence: None)
  Receive Date: 20220819
  Receipt Date: 20220819
  Transmission Date: 20221026
  Serious: Yes (Hospitalization, Other)
  Sender: FDA-Public Use
  Company Number: None

PATIENT
  Age: 68 Year
  Sex: Female

DRUGS (1)
  1. BEBTELOVIMAB [Suspect]
     Active Substance: BEBTELOVIMAB
     Indication: COVID-19 treatment

REACTIONS (8)
  - Malaise [None]
  - Chest pain [None]
  - Chest discomfort [None]
  - Dizziness [None]
  - Dizziness [None]
  - Dyspnoea [None]
  - Dyspnoea [None]
  - Heart rate decreased [None]

NARRATIVE: CASE EVENT DATE: 20220818
